FAERS Safety Report 16934416 (Version 1)
Quarter: 2019Q4

REPORT INFORMATION
  Report Type: Report from Study
  Country: KW (occurrence: KW)
  Receive Date: 20191018
  Receipt Date: 20191018
  Transmission Date: 20200122
  Serious: Yes (Death)
  Sender: FDA-Public Use
  Company Number: NVSC2019KW006099

PATIENT
  Age: 23 Year
  Sex: Male

DRUGS (1)
  1. REVOLADE [Suspect]
     Active Substance: ELTROMBOPAG
     Indication: APLASTIC ANAEMIA
     Dosage: 150 MG, QD
     Route: 048
     Dates: start: 20190625

REACTIONS (1)
  - Death [Fatal]

NARRATIVE: CASE EVENT DATE: 201909
